FAERS Safety Report 5163751-X (Version None)
Quarter: 2006Q4

REPORT INFORMATION
  Report Type: 
  Country: None (occurrence: None)
  Receive Date: 20061127
  Receipt Date: 20061127
  Transmission Date: 20070319
  Serious: Yes (Other)
  Sender: FDA-Public Use
  Company Number: None

PATIENT
  Age: 27 Year
  Sex: Female
  Weight: 53.5244 kg

DRUGS (2)
  1. CIPRO [Suspect]
     Indication: URINARY TRACT INFECTION
     Dosage: 500MG ONCE DAILY PO
     Route: 048
     Dates: start: 20060928, end: 20061002
  2. CIPRO [Suspect]
     Indication: URINARY TRACT INFECTION
     Dosage: 500MG ONCE DAILY PO
     Route: 048
     Dates: start: 20061125, end: 20061125

REACTIONS (2)
  - HYPERAESTHESIA [None]
  - PAIN IN EXTREMITY [None]
